FAERS Safety Report 6215178-7 (Version None)
Quarter: 2009Q2

REPORT INFORMATION
  Report Type: 
  Country: None (occurrence: None)
  Receive Date: 20090601
  Receipt Date: 20081031
  Transmission Date: 20091009
  Serious: Yes (Hospitalization)
  Sender: FDA-Public Use
  Company Number: 280926

PATIENT
  Age: 65 Year
  Sex: Female

DRUGS (9)
  1. ACTIVELLA [Suspect]
     Indication: HORMONE REPLACEMENT THERAPY
     Dosage: ORAL
     Route: 048
  2. PROVERA [Suspect]
     Indication: HORMONE THERAPY
     Dates: start: 19860101, end: 19960101
  3. PREMPRO [Suspect]
     Indication: HORMONE THERAPY
     Dates: start: 19960101, end: 20020101
  4. PREMARIN [Suspect]
     Indication: HORMONE THERAPY
     Dates: start: 19890101, end: 19960101
  5. SYNTHROID [Concomitant]
  6. NORMADIL (NIFEDIPINE) [Concomitant]
  7. TOPROL-XL [Concomitant]
  8. ALBUTEROL /00139501/ (SALBUTAMOL) [Concomitant]
  9. LASIX [Concomitant]

REACTIONS (1)
  - BREAST CANCER [None]
